FAERS Safety Report 9782299 (Version 1)
Quarter: 2013Q4

REPORT INFORMATION
  Report Type: Spontaneous
  Country: US (occurrence: US)
  Receive Date: 20131226
  Receipt Date: 20131226
  Transmission Date: 20140711
  Serious: Yes (Hospitalization, Other)
  Sender: FDA-Public Use
  Company Number: PHHY2013US151574

PATIENT
  Age: 53 Year
  Sex: Female

DRUGS (23)
  1. CUBICIN [Suspect]
     Dosage: UNK
     Route: 042
     Dates: end: 20131201
  2. METFORMIN HYDROCHLORIDE SANDOZ [Suspect]
     Indication: TYPE 2 DIABETES MELLITUS
     Dosage: 500 MG, BID
     Route: 048
  3. DAPAGLIFLOZIN [Suspect]
     Indication: TYPE 2 DIABETES MELLITUS
     Dosage: UNK
     Dates: start: 20130718
  4. DAPAGLIFLOZIN [Suspect]
     Dosage: UNK
     Route: 048
     Dates: start: 20130821, end: 20131201
  5. VICTOZA [Suspect]
     Indication: TYPE 2 DIABETES MELLITUS
     Dosage: 1.8 MG, QD
     Route: 058
  6. NOVOLOG [Suspect]
     Indication: TYPE 2 DIABETES MELLITUS
     Dosage: 60 IU, TID
  7. CRESTOR [Suspect]
     Dosage: 5 MG, QD
     Route: 048
     Dates: end: 20131201
  8. CARVEDILOL [Concomitant]
  9. METOLAZONE [Concomitant]
  10. GABAPENTIN [Concomitant]
  11. POTASSIUM CHLORIDE [Concomitant]
  12. ASPIRIN [Concomitant]
  13. METANX [Concomitant]
  14. VITAMIN C [Concomitant]
  15. HYDROCODONE [Concomitant]
     Dosage: UNK
     Dates: start: 20130723, end: 20130831
  16. AMOXICILLIN [Concomitant]
     Dosage: UNK
     Dates: start: 20130723, end: 20130801
  17. CLINDAMYCIN [Concomitant]
     Dosage: UNK
     Dates: start: 20130830, end: 20130908
  18. METHYLPREDNISOLONE [Concomitant]
     Dosage: UNK
     Dates: start: 20130905, end: 20130905
  19. BETAMETHASONE [Concomitant]
     Dosage: UNK
     Dates: start: 20130910, end: 20130912
  20. PNEUMOVAX [Concomitant]
     Dosage: UNK
     Dates: start: 20131112, end: 20131112
  21. CALCIUM [Concomitant]
  22. VITAMIN D3 [Concomitant]
  23. SACCHAROMYCES BOULARDII [Concomitant]

REACTIONS (6)
  - Systemic inflammatory response syndrome [Unknown]
  - Osteomyelitis [Unknown]
  - Cellulitis [Unknown]
  - Rhabdomyolysis [Unknown]
  - Renal failure [Unknown]
  - Blood creatine phosphokinase increased [Unknown]
